FAERS Safety Report 17871260 (Version 2)
Quarter: 2020Q2

REPORT INFORMATION
  Report Type: Spontaneous
  Country: AR (occurrence: AR)
  Receive Date: 20200608
  Receipt Date: 20200615
  Transmission Date: 20200714
  Serious: Yes (Other)
  Sender: FDA-Public Use
  Company Number: AR-PFIZER INC-2020219696

PATIENT
  Age: 83 Year
  Sex: Female

DRUGS (5)
  1. PANTUS [LEVODROPROPIZINE] [Concomitant]
  2. LOSARTAN. [Concomitant]
     Active Substance: LOSARTAN
     Dosage: 50 MG, 2X/DAY
  3. LEVOTHYROXINE. [Concomitant]
     Active Substance: LEVOTHYROXINE
  4. XELJANZ [Suspect]
     Active Substance: TOFACITINIB CITRATE
     Indication: RHEUMATOID ARTHRITIS
     Dosage: 5 MG, 2X/DAY
     Dates: start: 20140808
  5. SINLIP [GEMFIBROZIL] [Concomitant]
     Dosage: 5 MG, EVERY EACH OTHER DAY

REACTIONS (4)
  - Rheumatoid factor positive [Unknown]
  - Visual impairment [Unknown]
  - Malaria [Unknown]
  - Cataract [Unknown]
